FAERS Safety Report 7352570-1 (Version None)
Quarter: 2011Q1

REPORT INFORMATION
  Report Type: 
  Country: None (occurrence: None)
  Receive Date: 20110301
  Receipt Date: 20101206
  Transmission Date: 20110831
  Serious: Yes (Disabling, Other)
  Sender: FDA-Public Use
  Company Number: ALA_01618_2011

PATIENT
  Sex: Female
  Weight: 72.5755 kg

DRUGS (29)
  1. LORAZEPAM [Concomitant]
  2. AMBIEN [Concomitant]
  3. PROPOXYPHENE NAPSYLATE W/ ACETAMINOPHEN [Concomitant]
  4. TRANQUILIZERS [Concomitant]
  5. MECLIZINE /00072801/ [Concomitant]
  6. PRILOSEC [Concomitant]
  7. NASONEX [Concomitant]
  8. DULOXETINE [Concomitant]
  9. ESCITALOPRAM [Concomitant]
  10. NEXIUM [Concomitant]
  11. EVISTA [Concomitant]
  12. TRIAMTERENE AND HYDROCHLOROTHIAZIDE [Concomitant]
  13. CIPROFLOXACIN [Concomitant]
  14. METRONIDAZOLE [Concomitant]
  15. REGLAN [Suspect]
     Indication: GASTROOESOPHAGEAL REFLUX DISEASE
     Dosage: (10 MG DAILY ORAL)
     Route: 048
     Dates: start: 20020101, end: 20070101
  16. PROCHLORPERAZINE [Concomitant]
  17. GALENIC / AMOXICILLIN/CLAVULANIC ACID/ [Concomitant]
  18. CITALOPRAM [Concomitant]
  19. VENLAFAXINE [Concomitant]
  20. DIPHENHYDRAMINE [Concomitant]
  21. ALPRAZOLAM [Concomitant]
  22. HYDROCODONE BITARTRATE AND ACETAMINOPHEN [Concomitant]
  23. ZYPREXA [Concomitant]
  24. HERBAL SUPPLEMENTS [Concomitant]
  25. DIPHENOXYLATE HCL + ATROPINE SULFATE [Concomitant]
  26. SLEEP MEDICATION [Concomitant]
  27. PREMARIN [Concomitant]
  28. AMOXICILLIN [Concomitant]
  29. MOBIC [Concomitant]

REACTIONS (3)
  - TARDIVE DYSKINESIA [None]
  - DYSKINESIA [None]
  - TONGUE BITING [None]
